FAERS Safety Report 5204803-5 (Version None)
Quarter: 2007Q1

REPORT INFORMATION
  Report Type: 
  Country: None (occurrence: None)
  Receive Date: 20070110
  Receipt Date: 20060719
  Transmission Date: 20070707
  Serious: Yes (Hospitalization)
  Sender: FDA-Public Use
  Company Number: US-BRISTOL-MYERS SQUIBB COMPANY-13451869

PATIENT
  Sex: Female

DRUGS (9)
  1. ABILIFY [Suspect]
     Indication: DELUSIONAL DISORDER, PERSECUTORY TYPE
  2. PRILOSEC [Concomitant]
  3. ULTRACET [Concomitant]
  4. AMBIEN [Concomitant]
  5. SEROQUEL [Concomitant]
  6. CABERGOLINE [Concomitant]
  7. NORTRIPTYLINE HCL [Concomitant]
  8. BACLOFEN [Concomitant]
  9. SYNTHROID [Concomitant]

REACTIONS (1)
  - SINUS TACHYCARDIA [None]
